FAERS Safety Report 5411882-9 (Version None)
Quarter: 2007Q3

REPORT INFORMATION
  Report Type: 
  Country: None (occurrence: None)
  Receive Date: 20070813
  Receipt Date: 20070802
  Transmission Date: 20080115
  Serious: Yes (Hospitalization)
  Sender: FDA-Public Use
  Company Number: KR-JNJFOC-20070702881

PATIENT
  Sex: Male
  Weight: 60 kg

DRUGS (5)
  1. DURAGESIC-100 [Suspect]
     Indication: CANCER PAIN
     Route: 062
  2. OXYCODONE HCL [Concomitant]
     Dosage: AS NEEDED PER DAY
     Route: 065
  3. OXYCODONE HCL [Concomitant]
     Indication: PAIN
     Route: 065
  4. MOSAPRIDE CITRATE [Concomitant]
     Indication: GASTROINTESTINAL DISORDER THERAPY
     Route: 065
  5. MAGNESIUM HYDROXIDE TAB [Concomitant]
     Indication: CONSTIPATION PROPHYLAXIS
     Route: 065

REACTIONS (1)
  - DELIRIUM [None]
